FAERS Safety Report 15954329 (Version 4)
Quarter: 2019Q2

REPORT INFORMATION
  Report Type: Report from Study
  Country: BR (occurrence: BR)
  Receive Date: 20190212
  Receipt Date: 20190412
  Transmission Date: 20190711
  Serious: Yes (Hospitalization, Other)
  Sender: FDA-Public Use
  Company Number: PHHY2019BR012408

PATIENT
  Age: 78 Year
  Sex: Female
  Weight: 48 kg

DRUGS (3)
  1. OSCAL D [Suspect]
     Active Substance: CALCIUM CARBONATE\CHOLECALCIFEROL
     Indication: PRODUCT USED FOR UNKNOWN INDICATION
     Dosage: 150 MG, QW
     Route: 048
  2. ACLASTA [Suspect]
     Active Substance: ZOLEDRONIC ACID
     Indication: OSTEOPOROSIS
     Dosage: 1 DF (5 MG/100 ML), Q12MO
     Route: 042
     Dates: start: 20171222
  3. OSCAL D [Suspect]
     Active Substance: CALCIUM CARBONATE\CHOLECALCIFEROL
     Dosage: 150 MG, QMO
     Route: 048

REACTIONS (20)
  - Hypersensitivity [Recovering/Resolving]
  - Asthenia [Recovered/Resolved]
  - Erythema [Recovering/Resolving]
  - Pyrexia [Recovering/Resolving]
  - Nausea [Recovered/Resolved]
  - Vomiting [Recovered/Resolved]
  - Diarrhoea [Recovering/Resolving]
  - Feeding disorder [Not Recovered/Not Resolved]
  - Blood pressure increased [Unknown]
  - Dyspepsia [Recovered/Resolved]
  - Fall [Recovered/Resolved]
  - Dysuria [Recovering/Resolving]
  - Urinary tract infection [Recovering/Resolving]
  - Anxiety [Unknown]
  - Decreased appetite [Recovering/Resolving]
  - Viral infection [Recovered/Resolved]
  - Femur fracture [Recovered/Resolved]
  - Viral infection [Recovered/Resolved]
  - Measles [Recovering/Resolving]
  - Insomnia [Unknown]

NARRATIVE: CASE EVENT DATE: 20181231
